FAERS Safety Report 6555906-4 (Version None)
Quarter: 2010Q1

REPORT INFORMATION
  Report Type: 
  Country: None (occurrence: None)
  Receive Date: 20100128
  Receipt Date: 20100118
  Transmission Date: 20100710
  Serious: Yes (Other)
  Sender: FDA-Public Use
  Company Number: US-ABBOTT-10P-163-0620396-00

PATIENT
  Sex: Female
  Weight: 72.64 kg

DRUGS (5)
  1. HUMIRA [Suspect]
     Indication: RHEUMATOID ARTHRITIS
     Dates: start: 20080101, end: 20080801
  2. HUMIRA [Suspect]
     Dosage: HELD FOR 3 MONTHS DUE TO SINUS INFECTION
     Dates: start: 20080801, end: 20081001
  3. HUMIRA [Suspect]
     Dates: start: 20090101, end: 20090101
  4. METHOTREXATE [Concomitant]
     Indication: RHEUMATOID ARTHRITIS
     Dates: end: 20090101
  5. MOBIC [Concomitant]
     Indication: RHEUMATOID ARTHRITIS
     Dosage: AS NEEDED

REACTIONS (7)
  - ACNE [None]
  - BASAL CELL CARCINOMA [None]
  - HAEMORRHAGE [None]
  - MUSCULOSKELETAL STIFFNESS [None]
  - SINUSITIS [None]
  - URINARY TRACT INFECTION [None]
  - VAGINAL INFECTION [None]
